FAERS Safety Report 23878711 (Version 1)
Quarter: 2024Q2

REPORT INFORMATION
  Report Type: Spontaneous
  Country: US (occurrence: None)
  Receive Date: 20240520
  Receipt Date: 20240520
  Transmission Date: 20240716
  Serious: Yes (Other)
  Sender: FDA-Public Use
  Company Number: None

PATIENT
  Age: 60 Year
  Sex: Female

DRUGS (1)
  1. DUPIXENT [Suspect]
     Active Substance: DUPILUMAB
     Indication: Dermatitis atopic
     Dosage: 300 MG EVERY 14 DAYS SUBCUTANEOUS?
     Route: 058

REACTIONS (3)
  - Paraesthesia [None]
  - Sensory level abnormal [None]
  - Drug level below therapeutic [None]

NARRATIVE: CASE EVENT DATE: 20240520
